FAERS Safety Report 13391510 (Version 1)
Quarter: 2017Q1

REPORT INFORMATION
  Report Type: Spontaneous
  Country: US (occurrence: US)
  Receive Date: 20170331
  Receipt Date: 20170331
  Transmission Date: 20170429
  Serious: Yes (Other)
  Sender: FDA-Public Use
  Company Number: None

PATIENT
  Age: 47 Year
  Sex: Female
  Weight: 66.6 kg

DRUGS (1)
  1. AMITRYPTALINE HCL 10MG [Suspect]
     Active Substance: AMITRIPTYLINE
     Indication: MIGRAINE
     Dosage: ?          QUANTITY:1 TABLET(S);?
     Route: 048
     Dates: start: 20160101, end: 20170327

REACTIONS (9)
  - Pharyngeal oedema [None]
  - Throat tightness [None]
  - Dysphagia [None]
  - Throat irritation [None]
  - Hypoaesthesia oral [None]
  - Wrong technique in product usage process [None]
  - Product taste abnormal [None]
  - Product contamination [None]
  - Hypoaesthesia [None]

NARRATIVE: CASE EVENT DATE: 20170327
